FAERS Safety Report 15311934 (Version 1)
Quarter: 2018Q3

REPORT INFORMATION
  Report Type: Spontaneous
  Country: GB (occurrence: GB)
  Receive Date: 20180823
  Receipt Date: 20180823
  Transmission Date: 20181010
  Serious: Yes (Hospitalization)
  Sender: FDA-Public Use
  Company Number: GB-TEVA-2018-GB-947064

PATIENT
  Age: 83 Year
  Sex: Male

DRUGS (8)
  1. PARACETAMOL [Concomitant]
     Active Substance: ACETAMINOPHEN
  2. LAXIDO [Concomitant]
     Active Substance: POLYETHYLENE GLYCOL 3350\POTASSIUM CHLORIDE\SODIUM BICARBONATE\SODIUM CHLORIDE
     Route: 048
  3. WARFARIN [Concomitant]
     Active Substance: WARFARIN
     Dosage: ALTERNATE 2 THEN 1 THEN 2 EACH DAY
  4. TAMSULOSIN [Concomitant]
     Active Substance: TAMSULOSIN
  5. BISOPROLOL [Concomitant]
     Active Substance: BISOPROLOL
     Dosage: 6.25 MILLIGRAM DAILY;
  6. LISINOPRIL. [Suspect]
     Active Substance: LISINOPRIL
     Dosage: 15 MILLIGRAM DAILY;
     Route: 048
     Dates: end: 20180724
  7. BENDROFLUMETHIAZIDE [Suspect]
     Active Substance: BENDROFLUMETHIAZIDE
     Dosage: 2.5 MILLIGRAM DAILY; MORNING
     Route: 065
     Dates: end: 20180724
  8. FINASTERIDE. [Concomitant]
     Active Substance: FINASTERIDE

REACTIONS (2)
  - Accidental overdose [Unknown]
  - Hyponatraemia [Recovering/Resolving]

NARRATIVE: CASE EVENT DATE: 20180724
